FAERS Safety Report 9972681 (Version 1)
Quarter: 2014Q1

REPORT INFORMATION
  Report Type: Spontaneous
  Country: US (occurrence: US)
  Receive Date: 20140306
  Receipt Date: 20140306
  Transmission Date: 20141002
  Serious: Yes (Hospitalization)
  Sender: FDA-Public Use
  Company Number: US-BAXTER-2014BAX010004

PATIENT
  Age: 87 Year
  Sex: Male

DRUGS (1)
  1. DIANEAL LOW CALCIUM [Suspect]
     Indication: RENAL FAILURE CHRONIC
     Route: 033
     Dates: start: 201304

REACTIONS (4)
  - Fall [Recovering/Resolving]
  - Ligament sprain [Recovering/Resolving]
  - Oedema [Recovering/Resolving]
  - Dehydration [Recovering/Resolving]
